FAERS Safety Report 7397661-4 (Version None)
Quarter: 2011Q2

REPORT INFORMATION
  Report Type: 
  Country: None (occurrence: None)
  Receive Date: 20110406
  Receipt Date: 20110325
  Transmission Date: 20111010
  Serious: Yes (Other)
  Sender: FDA-Public Use
  Company Number: PHHY2011US25044

PATIENT
  Age: 52 Year
  Sex: Female

DRUGS (3)
  1. EPINEPHRINE [Interacting]
     Dosage: 0.20 MG, UNK
  2. PROPRANOLOL [Interacting]
     Indication: HYPERTENSION
     Dosage: 20 MG, TID
  3. LIDOCAINE [Suspect]
     Dosage: UNK UKN, UNK

REACTIONS (4)
  - HYPERTENSIVE CRISIS [None]
  - BLOOD PRESSURE INCREASED [None]
  - HEART RATE DECREASED [None]
  - DRUG INTERACTION [None]
